FAERS Safety Report 8214149-9 (Version None)
Quarter: 2012Q1

REPORT INFORMATION
  Report Type: 
  Country: None (occurrence: None)
  Receive Date: 20120314
  Receipt Date: 20120314
  Transmission Date: 20120608
  Serious: Yes (Other)
  Sender: FDA-Public Use
  Company Number: None

PATIENT
  Sex: Male

DRUGS (3)
  1. FLUOXETINE [Suspect]
     Indication: PANIC DISORDER
     Dosage: 40 MG QD PO
     Route: 048
     Dates: start: 20120101, end: 20120201
  2. FLUOXETINE [Suspect]
     Indication: MAJOR DEPRESSION
     Dosage: 40 MG QD PO
     Route: 048
     Dates: start: 20120101, end: 20120201
  3. FLUOXETINE [Suspect]
     Indication: DISEASE RECURRENCE
     Dosage: 40 MG QD PO
     Route: 048
     Dates: start: 20120101, end: 20120201

REACTIONS (8)
  - FEELING ABNORMAL [None]
  - ANXIETY [None]
  - DIZZINESS [None]
  - DEPRESSION [None]
  - NAUSEA [None]
  - DRY MOUTH [None]
  - PRODUCT SUBSTITUTION ISSUE [None]
  - MOOD ALTERED [None]
